FAERS Safety Report 7872823-8 (Version None)
Quarter: 2011Q4

REPORT INFORMATION
  Report Type: 
  Country: None (occurrence: None)
  Receive Date: 20111030
  Receipt Date: 20110425
  Transmission Date: 20120403
  Serious: No
  Sender: FDA-Public Use
  Company Number: US-AMGEN-USASP2011018347

PATIENT
  Age: 53 Year
  Sex: Female

DRUGS (1)
  1. ENBREL [Suspect]
     Indication: RHEUMATOID ARTHRITIS
     Dosage: 50 MG, QWK
     Dates: start: 20090801

REACTIONS (5)
  - SEBORRHOEIC KERATOSIS [None]
  - POST PROCEDURAL INFECTION [None]
  - ACTINIC KERATOSIS [None]
  - ARTHRALGIA [None]
  - MUSCULOSKELETAL STIFFNESS [None]
